FAERS Safety Report 6147315-7 (Version None)
Quarter: 2009Q2

REPORT INFORMATION
  Report Type: 
  Country: None (occurrence: None)
  Receive Date: 20090408
  Receipt Date: 20090326
  Transmission Date: 20091009
  Serious: Yes (Other)
  Sender: FDA-Public Use
  Company Number: PHHY2009NL11515

PATIENT
  Sex: Male
  Weight: 75 kg

DRUGS (2)
  1. LESCOL [Suspect]
     Indication: HYPERCHOLESTEROLAEMIA
     Dosage: 20MG PER DAY
     Route: 048
     Dates: start: 20090219, end: 20090302
  2. PANTOZOL [Concomitant]
     Dosage: 20MG PER DAY
     Dates: start: 20030728

REACTIONS (2)
  - EPISTAXIS [None]
  - MUSCLE SPASMS [None]
